FAERS Safety Report 5951286 (Version 6)
Quarter: 2014Q4

REPORT INFORMATION
  Report Type: Spontaneous
  Country: JP (occurrence: JP)
  Receive Date: 20051227
  Receipt Date: 20141027
  Transmission Date: 20150529
  Serious: Yes (Hospitalization)
  Sender: FDA-Public Use
  Company Number: JP-NOVOPROD-249423

PATIENT
  Age: 70 Year
  Sex: Male
  Weight: 44 kg

DRUGS (11)
  1. NOVOLIN N [Suspect]
     Active Substance: INSULIN HUMAN
     Indication: TYPE 2 DIABETES MELLITUS
     Dosage: 16 U, QD
     Route: 058
     Dates: start: 20050204, end: 20050618
  2. HUMACART R [Suspect]
     Active Substance: INSULIN HUMAN
     Indication: TYPE 2 DIABETES MELLITUS
     Dosage: 9 IU, QD
     Route: 058
     Dates: start: 20050109, end: 20050203
  3. NOVORAPID [Concomitant]
     Active Substance: INSULIN ASPART
     Indication: INSULIN-REQUIRING TYPE 2 DIABETES MELLITUS
     Dosage: 14-50 IU
     Route: 058
     Dates: start: 20050621, end: 20050630
  4. URSO [Concomitant]
     Active Substance: URSODIOL
     Indication: HEPATIC FUNCTION ABNORMAL
     Dosage: 150 MG, QD
     Dates: start: 20051007, end: 20051013
  5. NORVASC [Concomitant]
     Active Substance: AMLODIPINE BESYLATE
     Dosage: 2.5 MG, QD
     Route: 048
     Dates: start: 200501
  6. NOVOLIN [Concomitant]
     Active Substance: INSULIN HUMAN
     Indication: INSULIN-REQUIRING TYPE 2 DIABETES MELLITUS
     Dosage: 16-24 IU, QD
     Route: 058
     Dates: start: 20050124, end: 20050621
  7. NOVOLIN R [Concomitant]
     Active Substance: INSULIN HUMAN
     Indication: INSULIN-REQUIRING TYPE 2 DIABETES MELLITUS
     Dosage: 16-22 IU
     Route: 058
     Dates: start: 20050630, end: 20050718
  8. HALCION [Concomitant]
     Active Substance: TRIAZOLAM
     Indication: INSOMNIA
     Dosage: 0.25 MG, QD
     Route: 048
     Dates: start: 200501
  9. FERROMIA [Concomitant]
     Active Substance: FERROUS CITRATE
     Indication: ANAEMIA
     Dosage: 50 MG, QD
     Route: 048
     Dates: start: 20050821, end: 20050824
  10. NOVOLIN N [Concomitant]
     Active Substance: INSULIN HUMAN
     Indication: INSULIN-REQUIRING TYPE 2 DIABETES MELLITUS
     Dosage: 16-24 IU QD
     Route: 058
     Dates: start: 20050131, end: 20050725
  11. TATHION [Concomitant]
     Indication: HEPATIC FUNCTION ABNORMAL
     Dosage: 300 MG, QD
     Route: 048
     Dates: start: 20051007, end: 20051013

REACTIONS (6)
  - Diabetic ketoacidosis [Not Recovered/Not Resolved]
  - Glycosylated haemoglobin increased [None]
  - Injection site pruritus [Not Recovered/Not Resolved]
  - Skin test positive [Not Recovered/Not Resolved]
  - Anti-insulin antibody positive [Not Recovered/Not Resolved]
  - Injection site erythema [Not Recovered/Not Resolved]

NARRATIVE: CASE EVENT DATE: 200503
